FAERS Safety Report 7749847-4 (Version None)
Quarter: 2011Q3

REPORT INFORMATION
  Report Type: 
  Country: None (occurrence: None)
  Receive Date: 20110914
  Receipt Date: 20110815
  Transmission Date: 20111222
  Serious: Yes (Other)
  Sender: FDA-Public Use
  Company Number: AU-ROCHE-802078

PATIENT
  Sex: Female

DRUGS (10)
  1. ACTEMRA [Suspect]
     Indication: RHEUMATOID ARTHRITIS
     Route: 065
     Dates: start: 20110815
  2. METHOTREXATE [Concomitant]
  3. CYMBALTA [Concomitant]
  4. ENDEP [Concomitant]
  5. FOLIC ACID [Concomitant]
  6. NEXIUM [Concomitant]
  7. LEVOTHYROXINE SODIUM [Concomitant]
  8. LIVIAL [Concomitant]
  9. LYRICA [Concomitant]
  10. CATAPRES [Concomitant]
     Dosage: DRUG REPORTED AS CATAPRESS

REACTIONS (5)
  - MOUTH ULCERATION [None]
  - HEADACHE [None]
  - RASH [None]
  - OROPHARYNGEAL PAIN [None]
  - PARAESTHESIA ORAL [None]
